FAERS Safety Report 17144807 (Version 1)
Quarter: 2019Q4

REPORT INFORMATION
  Report Type: Spontaneous
  Country: US (occurrence: US)
  Receive Date: 20191212
  Receipt Date: 20191212
  Transmission Date: 20200122
  Serious: No
  Sender: FDA-Public Use
  Company Number: US-NOVEN PHARMACEUTICALS, INC.-US2019000419

PATIENT

DRUGS (3)
  1. VITAMINS [Concomitant]
     Active Substance: VITAMINS
  2. ESTRADIOL(GP) [Suspect]
     Active Substance: ESTRADIOL
     Indication: NIGHT SWEATS
  3. ESTRADIOL(GP) [Suspect]
     Active Substance: ESTRADIOL
     Indication: HOT FLUSH
     Dosage: 0.075 MG, EVERY SATURDAY AND TUESDAY
     Route: 062
     Dates: start: 201906

REACTIONS (6)
  - Libido decreased [Recovered/Resolved]
  - Product quality issue [Recovered/Resolved]
  - Product design issue [Not Recovered/Not Resolved]
  - Hot flush [Recovered/Resolved]
  - Therapeutic product effect decreased [Recovered/Resolved]
  - Accidental exposure to product [Recovered/Resolved]

NARRATIVE: CASE EVENT DATE: 2019
